FAERS Safety Report 5190412-3 (Version None)
Quarter: 2006Q4

REPORT INFORMATION
  Report Type: 
  Country: None (occurrence: None)
  Receive Date: 20061222
  Receipt Date: 20061206
  Transmission Date: 20070319
  Serious: Yes (Hospitalization, Other)
  Sender: FDA-Public Use
  Company Number: PHBS2006JP18956

PATIENT
  Age: 57 Year
  Sex: Female

DRUGS (4)
  1. NEORAL [Suspect]
     Indication: NEPHROTIC SYNDROME
     Dosage: UNK, UNK
     Route: 065
  2. NEORAL [Suspect]
     Dosage: 50 MG/D
     Route: 065
  3. NEORAL [Suspect]
     Dosage: 150 MG/D
     Route: 065
  4. PREDONINE [Suspect]
     Indication: NEPHROTIC SYNDROME

REACTIONS (6)
  - ASCITES [None]
  - BLOOD CHOLESTEROL INCREASED [None]
  - GENERALISED OEDEMA [None]
  - LIVER DISORDER [None]
  - NEPHROTIC SYNDROME [None]
  - PROTEIN URINE PRESENT [None]
